FAERS Safety Report 17918145 (Version 2)
Quarter: 2020Q3

REPORT INFORMATION
  Report Type: Report from Study
  Country: CZ (occurrence: CZ)
  Receive Date: 20200619
  Receipt Date: 20200703
  Transmission Date: 20201103
  Serious: Yes (Life-Threatening, Other)
  Sender: FDA-Public Use
  Company Number: CZ-INCYTE CORPORATION-2016IN007385

PATIENT

DRUGS (6)
  1. VITAMIN B12 [Concomitant]
     Active Substance: CYANOCOBALAMIN
     Indication: VITAMIN B12 DEFICIENCY
     Dosage: UNK
     Route: 065
  2. JAKAVI [Suspect]
     Active Substance: RUXOLITINIB
     Indication: TOXICITY TO VARIOUS AGENTS
     Dosage: 15 MG, BID (1ST LINE OF TREATMENT)
     Route: 065
     Dates: start: 20150115, end: 20161028
  3. JAKAVI [Suspect]
     Active Substance: RUXOLITINIB
     Dosage: 5 MG, QD
     Route: 065
     Dates: start: 20161216, end: 20171028
  4. VIGANTOL [COLECALCIFEROL?CHOLESTERIN] [Concomitant]
     Indication: VITAMIN D DEFICIENCY
     Dosage: UNK
     Route: 065
  5. CONTROLOC [Concomitant]
     Active Substance: PANTOPRAZOLE SODIUM
     Indication: PEPTIC ULCER
     Dosage: UNK
     Route: 065
  6. SUPPORTAN [Concomitant]
     Indication: MALNUTRITION
     Dosage: UNK
     Route: 065

REACTIONS (10)
  - Anaemia [Recovered/Resolved]
  - Drug intolerance [Unknown]
  - Product use in unapproved indication [Unknown]
  - Transformation to acute myeloid leukaemia [Not Recovered/Not Resolved]
  - Infection [Unknown]
  - Thrombocytopenia [Recovering/Resolving]
  - Toxicity to various agents [Unknown]
  - Anaemia [Recovering/Resolving]
  - Therapeutic response decreased [Unknown]
  - Inappropriate schedule of product administration [Unknown]

NARRATIVE: CASE EVENT DATE: 20150326
